FAERS Safety Report 14678824 (Version 1)
Quarter: 2018Q1

REPORT INFORMATION
  Report Type: Spontaneous
  Country: FR (occurrence: FR)
  Receive Date: 20180326
  Receipt Date: 20180326
  Transmission Date: 20180509
  Serious: Yes (Other)
  Sender: FDA-Public Use
  Company Number: FR-MERCK KGAA-2044506

PATIENT
  Age: 52 Year
  Sex: Female

DRUGS (1)
  1. NOVOTHYROX [Suspect]
     Active Substance: LEVOTHYROXINE SODIUM
     Indication: POST PROCEDURAL HYPOTHYROIDISM
     Dates: end: 201708

REACTIONS (26)
  - Pain [Recovered/Resolved]
  - Myalgia [None]
  - Insomnia [None]
  - Headache [None]
  - Neck pain [None]
  - Asthenia [None]
  - Hot flush [None]
  - Aphasia [None]
  - Back pain [None]
  - Gastrointestinal disorder [None]
  - Muscle spasms [Recovered/Resolved]
  - Arthralgia [None]
  - Abdominal pain [None]
  - Anxiety [None]
  - Social avoidant behaviour [None]
  - General physical health deterioration [None]
  - Diarrhoea [None]
  - Abdominal distension [None]
  - Irritability [None]
  - Alopecia [None]
  - Fatigue [None]
  - Metabolic disorder [None]
  - Nervousness [None]
  - Hyperthyroidism [None]
  - Depressed mood [None]
  - Hypersensitivity [None]

NARRATIVE: CASE EVENT DATE: 201705
